FAERS Safety Report 15403126 (Version 1)
Quarter: 2018Q3

REPORT INFORMATION
  Report Type: Spontaneous
  Country: US (occurrence: US)
  Receive Date: 20180918
  Receipt Date: 20180918
  Transmission Date: 20181010
  Serious: Yes (Hospitalization, Other)
  Sender: FDA-Public Use
  Company Number: None

PATIENT
  Sex: Male
  Weight: 74.25 kg

DRUGS (4)
  1. JADENU [Suspect]
     Active Substance: DEFERASIROX
     Indication: HAEMOCHROMATOSIS
     Route: 048
     Dates: start: 20180821
  2. ONDANSETRON [Concomitant]
     Active Substance: ONDANSETRON
  3. PRAVASTATIN. [Concomitant]
     Active Substance: PRAVASTATIN
  4. VIDAVA [Concomitant]

REACTIONS (1)
  - Urinary tract infection [None]
